FAERS Safety Report 13762684 (Version 1)
Quarter: 2017Q3

REPORT INFORMATION
  Report Type: Spontaneous
  Country: US (occurrence: US)
  Receive Date: 20170718
  Receipt Date: 20170718
  Transmission Date: 20171127
  Serious: Yes (Other)
  Sender: FDA-Public Use
  Company Number: None

PATIENT
  Age: 51 Year
  Sex: Male

DRUGS (1)
  1. EXJADE [Suspect]
     Active Substance: DEFERASIROX
     Indication: IRON OVERLOAD
     Dosage: 3 TAABLETS DAILY ORAL
     Route: 048
     Dates: start: 20170202, end: 20170616

REACTIONS (2)
  - Liver function test increased [None]
  - Blood creatinine increased [None]

NARRATIVE: CASE EVENT DATE: 20170714
